FAERS Safety Report 7975978 (Version 8)
Quarter: 2013Q2

REPORT INFORMATION
  Report Type: Report from Study
  Country: US (occurrence: US)
  Receive Date: 20110606
  Receipt Date: 20130531
  Transmission Date: 20140414
  Serious: Yes (Life-Threatening, Hospitalization, Other)
  Sender: FDA-Public Use
  Company Number: US-ABBOTT-11P-163-0729961-00

PATIENT
  Age: 65 Year
  Sex: Male

DRUGS (4)
  1. HUMIRA [Suspect]
     Indication: PSORIASIS
     Route: 058
     Dates: start: 20080924, end: 20080924
  2. HUMIRA [Suspect]
     Route: 058
     Dates: start: 20110119, end: 20110401
  3. HUMIRA [Suspect]
     Route: 058
     Dates: start: 20130323
  4. LANTUS [Concomitant]
     Indication: DIABETES MELLITUS
     Dates: start: 2006

REACTIONS (1)
  - Oesophageal carcinoma [Recovered/Resolved]
